FAERS Safety Report 14293673 (Version 1)
Quarter: 2017Q4

REPORT INFORMATION
  Report Type: Spontaneous
  Country: US (occurrence: US)
  Receive Date: 20171216
  Receipt Date: 20171216
  Transmission Date: 20180321
  Serious: No
  Sender: FDA-Public Use
  Company Number: US-009507513-1712USA008142

PATIENT
  Age: 8 Year
  Sex: Female

DRUGS (3)
  1. ETOPOSIDE. [Suspect]
     Active Substance: ETOPOSIDE
     Indication: PRIMITIVE NEUROECTODERMAL TUMOUR
     Dosage: 50 MG/M2 DAILY X7-12 DAYS
     Route: 048
  2. THIOTEPA. [Suspect]
     Active Substance: THIOTEPA
     Indication: PRIMITIVE NEUROECTODERMAL TUMOUR
     Dosage: 200 MG/M2/DAY OR 300 MG/M2/DAY (6.67 MG/KG/DAY OR 10 MG/KG/DAY IF UNDER 3-YEARS OLD) ? 2 OR 3 DAYS A
  3. TEMODAR [Suspect]
     Active Substance: TEMOZOLOMIDE
     Indication: PRIMITIVE NEUROECTODERMAL TUMOUR
     Dosage: 150 MG/M2/DAILY X 5 DAYS
     Route: 048

REACTIONS (1)
  - Off label use [Unknown]
